FAERS Safety Report 4393558-2 (Version None)
Quarter: 2004Q3

REPORT INFORMATION
  Report Type: 
  Country: None (occurrence: None)
  Receive Date: 20040701
  Receipt Date: 20040625
  Transmission Date: 20050211
  Serious: Yes (Life-Threatening, Hospitalization)
  Sender: FDA-Public Use
  Company Number: 200412069GDS

PATIENT
  Age: 77 Year
  Sex: Female
  Weight: 85 kg

DRUGS (2)
  1. MOXIFLOXACIN HCL [Suspect]
     Indication: RESPIRATORY DISORDER
     Dosage: 400 MG, TOTAL DAILY, ORAL
     Route: 048
     Dates: start: 20040519, end: 20040526
  2. SINTROM [Suspect]
     Indication: ARTERIAL THROMBOSIS
     Dosage: ORAL
     Route: 048
     Dates: end: 20040526

REACTIONS (4)
  - ANAEMIA [None]
  - HAEMATOMA [None]
  - INTERNATIONAL NORMALISED RATIO INCREASED [None]
  - PROTHROMBIN LEVEL DECREASED [None]
